FAERS Safety Report 24700803 (Version 1)
Quarter: 2024Q4

REPORT INFORMATION
  Report Type: Spontaneous
  Country: US (occurrence: None)
  Receive Date: 20241204
  Receipt Date: 20241204
  Transmission Date: 20250114
  Serious: No
  Sender: Public
  Company Number: None

PATIENT
  Age: 30 Year
  Sex: Male

DRUGS (1)
  1. MAVYRET [Suspect]
     Active Substance: GLECAPREVIR\PIBRENTASVIR
     Indication: Hepatitis C
     Dosage: OTHER QUANTITY : TAKE 3 TABLETS;?OTHER FREQUENCY : DAILY FOR 8 WEEKS;?
     Route: 048
     Dates: start: 202410

REACTIONS (2)
  - Rehabilitation therapy [None]
  - Therapy interrupted [None]
